FAERS Safety Report 9485843 (Version 1)
Quarter: 2013Q3

REPORT INFORMATION
  Report Type: Spontaneous
  Country: US (occurrence: None)
  Receive Date: 20130821
  Receipt Date: 20130821
  Transmission Date: 20140515
  Serious: Yes (Hospitalization, Other)
  Sender: FDA-Public Use
  Company Number: ADR-2009-7187

PATIENT
  Age: 60 Year
  Sex: Female

DRUGS (1)
  1. LIORESAL INTRATHECAL [Suspect]
     Indication: MUSCLE SPASTICITY
     Route: 037

REACTIONS (5)
  - Skin disorder [None]
  - Medical device site reaction [None]
  - Device dislocation [None]
  - Weight decreased [None]
  - Medical device discomfort [None]
